FAERS Safety Report 19394905 (Version 1)
Quarter: 2021Q2

REPORT INFORMATION
  Report Type: Spontaneous
  Country: US (occurrence: US)
  Receive Date: 20210609
  Receipt Date: 20210609
  Transmission Date: 20210717
  Serious: No
  Sender: FDA-Public Use
  Company Number: US-PERRIGO-21US000222

PATIENT
  Age: 49 Year
  Sex: Female
  Weight: 52.15 kg

DRUGS (1)
  1. AMMONIUM LACTATE. [Suspect]
     Active Substance: AMMONIUM LACTATE
     Indication: ACCIDENTAL EXPOSURE TO PRODUCT
     Dosage: UNKNOWN, ONCE
     Route: 061
     Dates: start: 20210106, end: 20210106

REACTIONS (1)
  - Electric shock sensation [Recovered/Resolved]

NARRATIVE: CASE EVENT DATE: 20210106
